FAERS Safety Report 11643201 (Version 5)
Quarter: 2015Q4

REPORT INFORMATION
  Report Type: Spontaneous
  Country: US (occurrence: US)
  Receive Date: 20151020
  Receipt Date: 20151221
  Transmission Date: 20160304
  Serious: No
  Sender: FDA-Public Use
  Company Number: US-PFIZER INC-2015348080

PATIENT
  Age: 64 Year
  Sex: Male

DRUGS (2)
  1. VIAGRA [Suspect]
     Active Substance: SILDENAFIL CITRATE
     Dosage: UNK
  2. VITAMIN C [Suspect]
     Active Substance: ASCORBIC ACID
     Dosage: UNK

REACTIONS (1)
  - Dyspepsia [Recovered/Resolved]
